FAERS Safety Report 10952783 (Version 1)
Quarter: 2015Q1

REPORT INFORMATION
  Report Type: Spontaneous
  Country: US (occurrence: US)
  Receive Date: 20150325
  Receipt Date: 20150325
  Transmission Date: 20150721
  Serious: No
  Sender: FDA-Public Use
  Company Number: US-MYLANLABS-2015M1001671

PATIENT
  Sex: Male

DRUGS (1)
  1. CABERGOLINE TABLETS, USP [Suspect]
     Active Substance: CABERGOLINE
     Dosage: 0.5 MG, BIWEEKLY
     Route: 048
     Dates: start: 201412

REACTIONS (2)
  - Blood prolactin decreased [Not Recovered/Not Resolved]
  - Drug ineffective [Not Recovered/Not Resolved]

NARRATIVE: CASE EVENT DATE: 201501
